FAERS Safety Report 9016614 (Version 3)
Quarter: 2013Q1

REPORT INFORMATION
  Report Type: Spontaneous
  Country: US (occurrence: US)
  Receive Date: 20130117
  Receipt Date: 20130306
  Transmission Date: 20140127
  Serious: Yes (Other)
  Sender: FDA-Public Use
  Company Number: US-BIOGENIDEC-2013BI002715

PATIENT
  Age: 57 Year
  Sex: Female

DRUGS (22)
  1. TYSABRI [Suspect]
     Indication: MULTIPLE SCLEROSIS
     Route: 042
     Dates: start: 20110831
  2. AVONEX [Concomitant]
     Indication: MULTIPLE SCLEROSIS
     Route: 030
     Dates: start: 20080601
  3. SOLIFENACIN [Concomitant]
     Route: 048
  4. NAPROXEN [Concomitant]
     Route: 048
  5. ZOLPIDEM [Concomitant]
     Route: 048
  6. DESMOPRESSIN [Concomitant]
  7. BACLOFEN [Concomitant]
     Route: 048
  8. NITROFURANTOIN [Concomitant]
     Route: 048
  9. BOTULINUM TOXIN TYPE A [Concomitant]
  10. MAGNESIUM OXIDE [Concomitant]
     Route: 048
  11. OLMESARTAN [Concomitant]
     Route: 048
  12. CYANOCOBALAMIN [Concomitant]
     Route: 048
  13. CHOLECALCIFEROL [Concomitant]
     Route: 048
  14. OMEGA 3 [Concomitant]
  15. B6 [Concomitant]
  16. B12 [Concomitant]
  17. E [Concomitant]
  18. FOLIC ACID [Concomitant]
  19. FISH OIL [Concomitant]
  20. TRIAZOLAM [Concomitant]
     Route: 048
  21. EMLA [Concomitant]
  22. ALLERCLEAR [Concomitant]
     Route: 048

REACTIONS (10)
  - Hepatotoxicity [Recovered/Resolved]
  - Nausea [Unknown]
  - Fatigue [Unknown]
  - Pollakiuria [Unknown]
  - Urinary tract infection [Unknown]
  - Transaminases increased [Unknown]
  - Nocturia [Unknown]
  - Drug dose omission [Recovered/Resolved]
  - Nervousness [Not Recovered/Not Resolved]
  - Anxiety [Not Recovered/Not Resolved]
